FAERS Safety Report 6134616-1 (Version None)
Quarter: 2009Q1

REPORT INFORMATION
  Report Type: 
  Country: None (occurrence: None)
  Receive Date: 20090327
  Receipt Date: 20090317
  Transmission Date: 20090719
  Serious: Yes (Other)
  Sender: FDA-Public Use
  Company Number: SE-JNJFOC-20090304611

PATIENT
  Sex: Male

DRUGS (8)
  1. REMICADE [Suspect]
     Indication: PSORIATIC ARTHROPATHY
     Route: 042
  2. ACETAMINOPHEN W/ CODEINE [Concomitant]
  3. CONFORTID [Concomitant]
  4. PROBECID [Concomitant]
  5. PREDNISOLONE [Concomitant]
  6. KLOMIPRAMIN [Concomitant]
  7. NORVASC [Concomitant]
  8. TENORMIN [Concomitant]

REACTIONS (1)
  - HYPOCALCAEMIA [None]
